FAERS Safety Report 8512316-8 (Version None)
Quarter: 2012Q3

REPORT INFORMATION
  Report Type: 
  Country: None (occurrence: None)
  Receive Date: 20120716
  Receipt Date: 20120705
  Transmission Date: 20120928
  Serious: Yes (Hospitalization)
  Sender: FDA-Public Use
  Company Number: US-ACTELION-A-NJ2010-38325

PATIENT

DRUGS (2)
  1. TRACLEER [Suspect]
     Indication: PULMONARY ARTERIAL HYPERTENSION
     Dosage: UNK
     Route: 048
     Dates: start: 20081211
  2. COUMADIN [Suspect]

REACTIONS (7)
  - HAEMORRHAGE [None]
  - TOXICITY TO VARIOUS AGENTS [None]
  - INCREASED UPPER AIRWAY SECRETION [None]
  - GASTROINTESTINAL HAEMORRHAGE [None]
  - ASTHENIA [None]
  - ANAEMIA [None]
  - HAEMOGLOBIN DECREASED [None]
